FAERS Safety Report 6289005-6 (Version None)
Quarter: 2009Q3

REPORT INFORMATION
  Report Type: 
  Country: None (occurrence: None)
  Receive Date: 20090729
  Receipt Date: 20090723
  Transmission Date: 20100115
  Serious: Yes (Other)
  Sender: FDA-Public Use
  Company Number: US-AMGEN-US355793

PATIENT
  Weight: 2.89 kg

DRUGS (7)
  1. ENBREL [Suspect]
     Route: 064
     Dates: start: 20070904, end: 20071003
  2. VITAMIN TAB [Concomitant]
     Route: 064
     Dates: start: 20070904
  3. PREDNISONE [Concomitant]
     Route: 064
     Dates: start: 20071113, end: 20080130
  4. PREDNISONE [Concomitant]
     Route: 064
     Dates: start: 20080131
  5. INFLUENZA VACCINE [Concomitant]
     Route: 064
     Dates: start: 20071218, end: 20071218
  6. TYLENOL (CAPLET) [Concomitant]
     Route: 064
     Dates: start: 20070904, end: 20080215
  7. ASPIRIN [Concomitant]
     Route: 064
     Dates: start: 20080223, end: 20080223

REACTIONS (2)
  - HAIR FOLLICLE TUMOUR BENIGN [None]
  - MATERNAL DRUGS AFFECTING FOETUS [None]
